FAERS Safety Report 17199124 (Version 1)
Quarter: 2019Q4

REPORT INFORMATION
  Report Type: Spontaneous
  Country: FR (occurrence: FR)
  Receive Date: 20191225
  Receipt Date: 20191225
  Transmission Date: 20200122
  Serious: Yes (Hospitalization, Other)
  Sender: FDA-Public Use
  Company Number: FR-VISTAPHARM, INC.-VER201912-001471

PATIENT
  Age: 29 Year
  Sex: Male
  Weight: 92 kg

DRUGS (3)
  1. ALCOHOL. [Suspect]
     Active Substance: ALCOHOL
     Indication: PRODUCT USED FOR UNKNOWN INDICATION
     Dosage: 554 G EQUIVALENT TO TWO BOTTLES OF STRONG ALCOHOL AND A BOTTLE OF WINE
  2. HYDROCODONE AND ACETAMINOPHEN [Suspect]
     Active Substance: ACETAMINOPHEN\HYDROCODONE
     Indication: PRODUCT USED FOR UNKNOWN INDICATION
     Dosage: 20 G
  3. COLCHICINE. [Suspect]
     Active Substance: COLCHICINE
     Indication: PRODUCT USED FOR UNKNOWN INDICATION
     Dosage: 30 MG OF COLCHIMAX OR 0.33 MG / KG

REACTIONS (2)
  - Diarrhoea [Recovered/Resolved]
  - Poisoning [Unknown]
